FAERS Safety Report 8688371 (Version 2)
Quarter: 2013Q4

REPORT INFORMATION
  Report Type: Spontaneous
  Country: US (occurrence: US)
  Receive Date: 20120727
  Receipt Date: 20131031
  Transmission Date: 20140711
  Serious: No
  Sender: FDA-Public Use
  Company Number: US-009507513-2012SP024104

PATIENT
  Age: 65 Year
  Sex: Female
  Weight: 87.54 kg

DRUGS (7)
  1. CLARITIN [Suspect]
     Indication: SEASONAL ALLERGY
     Dosage: 10 MG, QD
     Route: 048
  2. CLARITIN [Suspect]
     Indication: MEDICAL OBSERVATION
     Dosage: 20 MG, ONCE
     Route: 048
     Dates: start: 20120428
  3. ULTRAM [Concomitant]
     Indication: CARDIAC FAILURE CONGESTIVE
     Dosage: UNK UNK, QD
  4. POTASSIUM (UNSPECIFIED) [Concomitant]
     Indication: INTERVERTEBRAL DISC DEGENERATION
     Dosage: UNK UNK, QD
  5. LASIX (FUROSEMIDE) [Concomitant]
     Indication: FIBROMYALGIA
     Dosage: UNK UNK, QD
  6. CAPTOPRIL [Concomitant]
     Indication: HYPOTENSION
     Dosage: UNK UNK, QD
  7. CORICIDIN HBP COUGH AND COLD [Concomitant]
     Indication: PRODUCT USED FOR UNKNOWN INDICATION
     Dosage: UNK UNK, PRN

REACTIONS (1)
  - Overdose [Unknown]
